FAERS Safety Report 18200783 (Version 2)
Quarter: 2020Q3

REPORT INFORMATION
  Report Type: Report from Study
  Country: US (occurrence: US)
  Receive Date: 20200827
  Receipt Date: 20200903
  Transmission Date: 20201103
  Serious: Yes (Other)
  Sender: FDA-Public Use
  Company Number: US-GILEAD-2020-0491889

PATIENT
  Sex: Male

DRUGS (1)
  1. AMBRISENTAN [Suspect]
     Active Substance: AMBRISENTAN
     Indication: PULMONARY HYPERTENSION
     Dosage: 10 MG, QD
     Route: 065
     Dates: start: 20200422

REACTIONS (6)
  - Loss of consciousness [Unknown]
  - Lymphadenectomy [Unknown]
  - Stress fracture [Unknown]
  - Oxygen saturation decreased [Unknown]
  - Muscle strain [Unknown]
  - Fall [Unknown]
